FAERS Safety Report 5148628-8 (Version None)
Quarter: 2006Q4

REPORT INFORMATION
  Report Type: 
  Country: None (occurrence: None)
  Receive Date: 20061107
  Receipt Date: 20061025
  Transmission Date: 20070319
  Serious: Yes (Other)
  Sender: FDA-Public Use
  Company Number: US-CVT-061790

PATIENT
  Age: 85 Year
  Sex: Female
  Weight: 79.8 kg

DRUGS (10)
  1. RANEXA [Suspect]
     Indication: ANGINA PECTORIS
     Dosage: SEE IMAGE
     Route: 048
     Dates: start: 20060701, end: 20060701
  2. LUCENTIS [Concomitant]
  3. VISUDYNE [Concomitant]
  4. SYNTHROID [Concomitant]
  5. CLONOPIN [Concomitant]
  6. MAXZIDE [Concomitant]
  7. COREG [Concomitant]
  8. AGGRENOX [Concomitant]
  9. POTASSIUM CHLORIDE [Concomitant]
  10. CLONOPIN [Concomitant]

REACTIONS (7)
  - BLINDNESS UNILATERAL [None]
  - DIZZINESS [None]
  - MACULAR DEGENERATION [None]
  - MIDDLE INSOMNIA [None]
  - RETCHING [None]
  - SNEEZING [None]
  - THROAT IRRITATION [None]
